FAERS Safety Report 19031790 (Version 1)
Quarter: 2021Q1

REPORT INFORMATION
  Report Type: Spontaneous
  Country: CN (occurrence: CN)
  Receive Date: 20210319
  Receipt Date: 20210319
  Transmission Date: 20210420
  Serious: Yes (Other)
  Sender: FDA-Public Use
  Company Number: CN-PFIZER INC-2021264246

PATIENT
  Age: 2 Year
  Sex: Female
  Weight: 15 kg

DRUGS (8)
  1. DEXAMETHASONE SODIUM PHOSPHATE. [Suspect]
     Active Substance: DEXAMETHASONE SODIUM PHOSPHATE
     Indication: ACUTE LYMPHOCYTIC LEUKAEMIA (IN REMISSION)
     Dosage: 2.5 MG, 1X/DAY
     Route: 037
     Dates: start: 20201215, end: 20201215
  2. VINCRISTINE [Suspect]
     Active Substance: VINCRISTINE
     Dosage: 0.93 MG, 1X/DAY
     Route: 041
     Dates: start: 20201221, end: 20201221
  3. DAUNORUBICIN [Suspect]
     Active Substance: DAUNORUBICIN
     Dosage: 15.6 MG, 1X/DAY
     Route: 041
     Dates: start: 20201222, end: 20201222
  4. VINCRISTINE [Suspect]
     Active Substance: VINCRISTINE
     Indication: ACUTE LYMPHOCYTIC LEUKAEMIA
     Dosage: 0.93 MG, 1X/DAY
     Route: 041
     Dates: start: 20201215, end: 20201215
  5. CYTOSAR [Suspect]
     Active Substance: CYTARABINE
     Indication: ACUTE LYMPHOCYTIC LEUKAEMIA (IN REMISSION)
     Dosage: 0.035 G, 1X/DAY
     Route: 037
     Dates: start: 20201215, end: 20201215
  6. AI YANG [PEGASPARGASE] [Suspect]
     Active Substance: PEGASPARGASE
     Indication: ACUTE LYMPHOCYTIC LEUKAEMIA
     Dosage: 1250 IU, 1X/DAY
     Route: 030
     Dates: start: 20201216, end: 20201216
  7. DAUNORUBICIN [Suspect]
     Active Substance: DAUNORUBICIN
     Indication: ACUTE LYMPHOCYTIC LEUKAEMIA
     Dosage: 15.6 MG, 1X/DAY
     Route: 041
     Dates: start: 20201215, end: 20201215
  8. METHOTREXATE. [Suspect]
     Active Substance: METHOTREXATE
     Indication: ACUTE LYMPHOCYTIC LEUKAEMIA (IN REMISSION)
     Dosage: 12.5 MG, 1X/DAY
     Route: 037
     Dates: start: 20201215, end: 20201215

REACTIONS (6)
  - Dizziness [Recovering/Resolving]
  - Full blood count [Recovering/Resolving]
  - Fatigue [Recovering/Resolving]
  - Myelosuppression [Recovering/Resolving]
  - Anaemia [Recovering/Resolving]
  - Pallor [Recovering/Resolving]

NARRATIVE: CASE EVENT DATE: 20201227
